FAERS Safety Report 6590866-1 (Version None)
Quarter: 2010Q1

REPORT INFORMATION
  Report Type: 
  Country: None (occurrence: None)
  Receive Date: 20100219
  Receipt Date: 20100210
  Transmission Date: 20100710
  Serious: Yes (Hospitalization)
  Sender: FDA-Public Use
  Company Number: CG-MERCK-1002USA01972

PATIENT
  Age: 42 Year
  Sex: Male

DRUGS (1)
  1. STROMECTOL [Suspect]
     Route: 048
     Dates: start: 20091206, end: 20091206

REACTIONS (5)
  - ASTHENIA [None]
  - GAIT DISTURBANCE [None]
  - HEADACHE [None]
  - PRURITUS [None]
  - SPEECH DISORDER [None]
